FAERS Safety Report 13101062 (Version 2)
Quarter: 2017Q2

REPORT INFORMATION
  Report Type: Spontaneous
  Country: FR (occurrence: FR)
  Receive Date: 20170110
  Receipt Date: 20170410
  Transmission Date: 20170830
  Serious: Yes (Hospitalization)
  Sender: FDA-Public Use
  Company Number: FR-SA-2017SA003782

PATIENT
  Age: 65 Year
  Sex: Female

DRUGS (2)
  1. APROVEL [Suspect]
     Active Substance: IRBESARTAN
     Route: 048
     Dates: start: 2015, end: 201611
  2. TAHOR [Concomitant]
     Active Substance: ATORVASTATIN CALCIUM
     Route: 048

REACTIONS (7)
  - Dyspepsia [Recovered/Resolved]
  - Fall [Recovered/Resolved]
  - Hot flush [Recovered/Resolved]
  - Diarrhoea [Recovered/Resolved]
  - Vertigo [Recovered/Resolved]
  - Hand fracture [Unknown]
  - Malaise [Recovered/Resolved]

NARRATIVE: CASE EVENT DATE: 201611
